FAERS Safety Report 13686806 (Version 1)
Quarter: 2017Q2

REPORT INFORMATION
  Report Type: Spontaneous
  Country: US (occurrence: US)
  Receive Date: 20170623
  Receipt Date: 20170623
  Transmission Date: 20170830
  Serious: No
  Sender: FDA-Public Use
  Company Number: US-VERTEX PHARMACEUTICALS-2017-003333

PATIENT
  Sex: Female

DRUGS (14)
  1. ZENPEP [Concomitant]
     Active Substance: PANCRELIPASE AMYLASE\PANCRELIPASE LIPASE\PANCRELIPASE PROTEASE
  2. OMEPRAZOLE. [Concomitant]
     Active Substance: OMEPRAZOLE
  3. TRIAMCINOLON [Concomitant]
  4. PULMOZYME [Concomitant]
     Active Substance: DORNASE ALFA
  5. URSODIOL. [Concomitant]
     Active Substance: URSODIOL
  6. MCT OIL [Concomitant]
  7. NAPROXEN. [Concomitant]
     Active Substance: NAPROXEN
  8. ORKAMBI [Suspect]
     Active Substance: IVACAFTOR\LUMACAFTOR
     Indication: CYSTIC FIBROSIS
     Dosage: 2 DF (100-125 MG), BID
     Route: 048
     Dates: start: 20170113
  9. CYPROHEPTAD [Concomitant]
  10. VITAMIN D3 [Concomitant]
     Active Substance: CHOLECALCIFEROL
  11. HYDROXYZINE [Concomitant]
     Active Substance: HYDROXYZINE HYDROCHLORIDE
  12. PROAIR HFA [Concomitant]
     Active Substance: ALBUTEROL SULFATE
  13. TOBRAMYCIN. [Concomitant]
     Active Substance: TOBRAMYCIN
  14. AZITHROMYCIN ANHYDROUS. [Concomitant]
     Active Substance: AZITHROMYCIN ANHYDROUS

REACTIONS (1)
  - Malaise [Unknown]

NARRATIVE: CASE EVENT DATE: 2017
